FAERS Safety Report 9044658 (Version 1)
Quarter: 2013Q1

REPORT INFORMATION
  Report Type: Report from Study
  Country: US (occurrence: US)
  Receive Date: 20130130
  Receipt Date: 20130130
  Transmission Date: 20140127
  Serious: No
  Sender: FDA-Public Use
  Company Number: US-VERTEX PHARMACEUTICALS INC.-2013-001241

PATIENT
  Sex: Male

DRUGS (1)
  1. VX-770 [Suspect]
     Indication: CYSTIC FIBROSIS
     Dosage: 150 MG, BID
     Route: 048
     Dates: start: 20120712

REACTIONS (6)
  - Influenza [Unknown]
  - Dehydration [Unknown]
  - Pancreatic disorder [Unknown]
  - Rales [Unknown]
  - Sinus headache [Unknown]
  - Nasal discharge discolouration [Unknown]
